FAERS Safety Report 14929664 (Version 1)
Quarter: 2018Q2

REPORT INFORMATION
  Report Type: Report from Study
  Country: US (occurrence: US)
  Receive Date: 20180523
  Receipt Date: 20180523
  Transmission Date: 20180711
  Serious: Yes (Other)
  Sender: FDA-Public Use
  Company Number: US-PFIZER INC-2018190669

PATIENT
  Age: 64 Year
  Sex: Female

DRUGS (6)
  1. SUTENT [Suspect]
     Active Substance: SUNITINIB MALATE
     Indication: METASTATIC RENAL CELL CARCINOMA
     Dosage: 50 MG, CYCLIC, (2 WEEKS ON AND 1 WEEK OFF)
     Dates: start: 201711
  2. AMLODIPINE [Concomitant]
     Active Substance: AMLODIPINE BESYLATE
     Dosage: UNK
  3. SUTENT [Suspect]
     Active Substance: SUNITINIB MALATE
     Dosage: 37.5 MG, CYCLIC, (DAILY FOR 2 WEEKS) (2 WEEKS ON/1 WEEK OFF)
     Route: 048
     Dates: start: 201801
  4. FLAGYL [Concomitant]
     Active Substance: METRONIDAZOLE\METRONIDAZOLE HYDROCHLORIDE
     Dosage: UNK
  5. CIPRO [Concomitant]
     Active Substance: CIPROFLOXACIN HYDROCHLORIDE
     Dosage: UNK
  6. ATIVAN [Concomitant]
     Active Substance: LORAZEPAM
     Dosage: UNK

REACTIONS (18)
  - Haematochezia [Unknown]
  - Dyspepsia [Unknown]
  - Dry mouth [Unknown]
  - Depression [Unknown]
  - Flatulence [Unknown]
  - Diarrhoea [Unknown]
  - Abdominal pain [Unknown]
  - Diverticulitis [Unknown]
  - Anxiety [Unknown]
  - Rash [Unknown]
  - Insomnia [Unknown]
  - Condition aggravated [Unknown]
  - Constipation [Unknown]
  - Nausea [Unknown]
  - Blood pressure increased [Unknown]
  - Oral pain [Unknown]
  - Hypertension [Unknown]
  - Oral pain [Unknown]

NARRATIVE: CASE EVENT DATE: 2018
